FAERS Safety Report 9465220 (Version 1)
Quarter: 2013Q3

REPORT INFORMATION
  Report Type: Spontaneous
  Country: US (occurrence: US)
  Receive Date: 20130819
  Receipt Date: 20130819
  Transmission Date: 20140515
  Serious: Yes (Hospitalization, Other)
  Sender: FDA-Public Use
  Company Number: US-JNJFOC-20130802657

PATIENT
  Sex: Female
  Weight: 72.58 kg

DRUGS (3)
  1. TYLENOL [Suspect]
     Route: 065
  2. TYLENOL [Suspect]
     Indication: PAIN
     Route: 065
  3. XARELTO [Concomitant]
     Indication: PAIN
     Route: 065

REACTIONS (2)
  - Adverse event [Unknown]
  - Pain [Not Recovered/Not Resolved]
